FAERS Safety Report 8432930-8 (Version None)
Quarter: 2012Q2

REPORT INFORMATION
  Report Type: 
  Country: None (occurrence: None)
  Receive Date: 20120613
  Receipt Date: 20120605
  Transmission Date: 20120825
  Serious: Yes (Other)
  Sender: FDA-Public Use
  Company Number: US-JNJFOC-20110408245

PATIENT
  Sex: Female

DRUGS (1)
  1. LEVAQUIN [Suspect]
     Indication: INFECTION
     Route: 048
     Dates: start: 20051001, end: 20051101

REACTIONS (7)
  - SKIN DISORDER [None]
  - RADICULITIS LUMBOSACRAL [None]
  - ARTHRALGIA [None]
  - PLANTAR FASCIITIS [None]
  - THERMAL BURN [None]
  - LICHEN PLANUS [None]
  - PAIN IN EXTREMITY [None]
